FAERS Safety Report 16680818 (Version 9)
Quarter: 2024Q1

REPORT INFORMATION
  Report Type: Spontaneous
  Country: US (occurrence: US)
  Receive Date: 20190808
  Receipt Date: 20240109
  Transmission Date: 20240409
  Serious: Yes (Other)
  Sender: FDA-Public Use
  Company Number: US-PFIZER INC-2010096630

PATIENT
  Age: 46 Year
  Sex: Female
  Weight: 82.54 kg

DRUGS (14)
  1. SOMAVERT [Suspect]
     Active Substance: PEGVISOMANT
     Indication: Hypothalamo-pituitary disorder
     Dosage: 10 MG, 1X/DAY
  2. SOMAVERT [Suspect]
     Active Substance: PEGVISOMANT
     Indication: Brain cancer metastatic
     Dosage: 20 MG, 1X/DAY
     Dates: start: 2009
  3. SOMAVERT [Suspect]
     Active Substance: PEGVISOMANT
     Indication: Fibrous dysplasia of bone
     Dosage: 20 MG, 1X/DAY
     Dates: start: 201004
  4. SOMAVERT [Suspect]
     Active Substance: PEGVISOMANT
     Indication: Acromegaly
     Dosage: 20 MG, DAILY
     Route: 058
  5. SOMAVERT [Suspect]
     Active Substance: PEGVISOMANT
     Indication: Gigantism
     Dosage: 25 MG, DAILY
     Route: 058
     Dates: start: 20170919
  6. SOMAVERT [Suspect]
     Active Substance: PEGVISOMANT
     Dosage: 30 MG
     Dates: start: 20170919
  7. SOMAVERT [Suspect]
     Active Substance: PEGVISOMANT
     Dosage: 30 MG, DAILY
     Route: 058
     Dates: start: 20200331
  8. METFORMIN [Concomitant]
     Active Substance: METFORMIN HYDROCHLORIDE
     Indication: Diabetes mellitus
     Dosage: 500 MG
  9. GLIPIZIDE [Concomitant]
     Active Substance: GLIPIZIDE
     Indication: Diabetes mellitus
     Dosage: UNK
  10. ATORVASTATIN [Concomitant]
     Active Substance: ATORVASTATIN
     Dosage: UNK
  11. HUMALOG [Concomitant]
     Active Substance: INSULIN LISPRO
     Dosage: UNK(100/ML)
  12. LANTUS [Concomitant]
     Active Substance: INSULIN GLARGINE
     Dosage: UNK(100/ML)
  13. LIPITOR [Concomitant]
     Active Substance: ATORVASTATIN CALCIUM
     Dosage: UNK
  14. SYNTHROID [Concomitant]
     Active Substance: LEVOTHYROXINE SODIUM
     Dosage: UNK

REACTIONS (14)
  - Headache [Not Recovered/Not Resolved]
  - Product dose omission issue [Not Recovered/Not Resolved]
  - Therapeutic response unexpected [Unknown]
  - Bone pain [Not Recovered/Not Resolved]
  - Alopecia [Not Recovered/Not Resolved]
  - Chromaturia [Not Recovered/Not Resolved]
  - Urine odour abnormal [Not Recovered/Not Resolved]
  - Injection site mass [Not Recovered/Not Resolved]
  - Pigmentation disorder [Unknown]
  - Influenza [Unknown]
  - Myalgia [Unknown]
  - Fatigue [Unknown]
  - Malaise [Unknown]
  - Arthralgia [Not Recovered/Not Resolved]

NARRATIVE: CASE EVENT DATE: 20090101
